FAERS Safety Report 5216966-6 (Version None)
Quarter: 2007Q1

REPORT INFORMATION
  Report Type: 
  Country: None (occurrence: None)
  Receive Date: 20070119
  Receipt Date: 20070102
  Transmission Date: 20070707
  Serious: Yes (Death, Hospitalization)
  Sender: FDA-Public Use
  Company Number: 2006002226

PATIENT
  Age: 62 Year
  Sex: Male

DRUGS (6)
  1. ERLOTINIB (TABLET) (ERLOTINIB HCL) [Suspect]
     Indication: NON-SMALL CELL LUNG CANCER
     Dosage: 150 MG (QD), ORAL
     Route: 048
     Dates: start: 20060223, end: 20060301
  2. ERLOTINIB (TABLET) (ERLOTINIB HCL) [Suspect]
     Indication: NON-SMALL CELL LUNG CANCER
     Dosage: 150 MG (QD), ORAL
     Route: 048
     Dates: start: 20051221, end: 20061105
  3. IRBESARTAN [Concomitant]
  4. SALOSPIR (ACETYLSALICYLIC ACID) [Concomitant]
  5. ISOSORBIDE MONONITRATE [Concomitant]
  6. LABETALOL HCL [Concomitant]

REACTIONS (2)
  - RESPIRATORY TRACT HAEMORRHAGE [None]
  - THROMBOCYTOPENIA [None]
